FAERS Safety Report 6786637-3 (Version None)
Quarter: 2010Q2

REPORT INFORMATION
  Report Type: 
  Country: None (occurrence: None)
  Receive Date: 20100623
  Receipt Date: 20100614
  Transmission Date: 20101027
  Serious: Yes (Other)
  Sender: FDA-Public Use
  Company Number: CD-BRISTOL-MYERS SQUIBB COMPANY-15147978

PATIENT
  Age: 17 Year
  Sex: Female

DRUGS (1)
  1. KENACORT [Suspect]
     Dosage: RECEIVED 2 LOCAL INJ.

REACTIONS (4)
  - JOINT DISLOCATION [None]
  - LIGAMENT RUPTURE [None]
  - MUSCLE ATROPHY [None]
  - SKIN DEPIGMENTATION [None]
